FAERS Safety Report 13542527 (Version 1)
Quarter: 2017Q2

REPORT INFORMATION
  Report Type: Spontaneous
  Country: US (occurrence: US)
  Receive Date: 20170512
  Receipt Date: 20170512
  Transmission Date: 20170830
  Serious: Yes (Life-Threatening)
  Sender: FDA-Public Use
  Company Number: US-ROCHE-725288

PATIENT
  Age: 61 Year
  Sex: Male
  Weight: 47.2 kg

DRUGS (2)
  1. AVASTIN [Suspect]
     Active Substance: BEVACIZUMAB
     Indication: NON-SMALL CELL LUNG CANCER
     Route: 042
     Dates: start: 20100329, end: 20100809
  2. ALINIA [Concomitant]
     Active Substance: NITAZOXANIDE
     Indication: NON-SMALL CELL LUNG CANCER
     Dosage: DOSE: 500 MG/M2
     Route: 042
     Dates: start: 20100329, end: 20100809

REACTIONS (1)
  - Intestinal perforation [Not Recovered/Not Resolved]

NARRATIVE: CASE EVENT DATE: 20100816
